FAERS Safety Report 8282030-5 (Version None)
Quarter: 2012Q2

REPORT INFORMATION
  Report Type: 
  Country: None (occurrence: None)
  Receive Date: 20120413
  Receipt Date: 20120405
  Transmission Date: 20120825
  Serious: Yes (Hospitalization, Other)
  Sender: FDA-Public Use
  Company Number: US-ASTELLAS-2012US001421

PATIENT
  Age: 73 Year
  Sex: Female

DRUGS (11)
  1. ERLOTINIB HYDROCHLORIDE [Suspect]
     Indication: NON-SMALL CELL LUNG CANCER STAGE IV
     Dosage: 150 MG, UID/QD
     Route: 048
     Dates: start: 20120118, end: 20120128
  2. ERLOTINIB HYDROCHLORIDE [Suspect]
     Dosage: 150 MG, UID/QD
     Route: 048
     Dates: start: 20120202
  3. CISPLATIN [Suspect]
     Dosage: UNK
     Route: 065
     Dates: start: 20120202
  4. DOCETAXEL [Suspect]
     Dosage: UNK
     Route: 065
     Dates: start: 20120202
  5. DOCETAXEL [Suspect]
     Indication: NON-SMALL CELL LUNG CANCER STAGE IV
     Dosage: UNK
     Route: 065
     Dates: start: 20120118, end: 20120128
  6. CISPLATIN [Suspect]
     Indication: NON-SMALL CELL LUNG CANCER STAGE IV
     Dosage: UNK
     Route: 065
     Dates: start: 20120118, end: 20120128
  7. ALPRAZOLAM [Concomitant]
     Indication: PRODUCT USED FOR UNKNOWN INDICATION
     Dosage: 0.5 MG, Q6 HOURS PRN
     Route: 065
  8. HYDROCODONE OVER TYLENOL [Concomitant]
     Indication: PRODUCT USED FOR UNKNOWN INDICATION
     Dosage: 5/325 MG, Q6 HOURS PRN
     Route: 065
  9. LISINOPRIL AND HYDROCHLOROTHIAZIDE [Suspect]
     Indication: HYPERTENSION
     Dosage: 20/12.5 MG
     Route: 065
  10. LEVOTHYROXINE SODIUM [Concomitant]
     Indication: PRODUCT USED FOR UNKNOWN INDICATION
     Dosage: 100 UG, UID/QD
     Route: 048
  11. ZOFRAN [Concomitant]
     Indication: PRODUCT USED FOR UNKNOWN INDICATION
     Dosage: 4 MG, Q6 HOURS PRN
     Route: 060

REACTIONS (12)
  - PNEUMONIA [None]
  - VOMITING [None]
  - MALNUTRITION [None]
  - MALAISE [None]
  - INSOMNIA [None]
  - DEHYDRATION [None]
  - RENAL FAILURE ACUTE [None]
  - GASTROENTERITIS PSEUDOMONAS [None]
  - MUSCLE SPASMS [None]
  - DECREASED APPETITE [None]
  - NEOPLASM MALIGNANT [None]
  - HEPATIC NEOPLASM MALIGNANT [None]
